FAERS Safety Report 16751188 (Version 4)
Quarter: 2022Q2

REPORT INFORMATION
  Report Type: Spontaneous
  Country: US (occurrence: US)
  Receive Date: 20190828
  Receipt Date: 20220429
  Transmission Date: 20220720
  Serious: No
  Sender: FDA-Public Use
  Company Number: US-PFIZER INC-2018347352

PATIENT
  Age: 65 Year
  Sex: Female
  Weight: 96 kg

DRUGS (4)
  1. LYRICA [Suspect]
     Active Substance: PREGABALIN
     Indication: Neuropathy peripheral
     Dosage: 75 MG, 3X/DAY (1 CAPSULE (75MG TOTAL) BY MOUTH 3 (THREE) TIMES A DAY)
     Route: 048
     Dates: start: 20180709, end: 2018
  2. LYRICA [Suspect]
     Active Substance: PREGABALIN
     Dosage: 100 MG, 4X/DAY
     Route: 048
     Dates: start: 2018
  3. LYRICA [Suspect]
     Active Substance: PREGABALIN
     Dosage: 100 MG, 3X/DAY
     Route: 048
     Dates: start: 20190225, end: 2019
  4. LYRICA [Suspect]
     Active Substance: PREGABALIN
     Dosage: 100 MG, 3X/DAY
     Route: 048
     Dates: start: 20190514

REACTIONS (3)
  - Intentional product misuse [Unknown]
  - Weight increased [Unknown]
  - Eyelid ptosis [Unknown]

NARRATIVE: CASE EVENT DATE: 20190627
